FAERS Safety Report 15448193 (Version 3)
Quarter: 2020Q2

REPORT INFORMATION
  Report Type: Report from Study
  Country: GT (occurrence: GT)
  Receive Date: 20180928
  Receipt Date: 20200508
  Transmission Date: 20200713
  Serious: Yes (Other)
  Sender: FDA-Public Use
  Company Number: PHHY2018GT068724

PATIENT
  Sex: Male

DRUGS (1)
  1. GILENYA [Suspect]
     Active Substance: FINGOLIMOD HYDROCHLORIDE
     Indication: MULTIPLE SCLEROSIS
     Dosage: 0.5 MG, QD
     Route: 048
     Dates: start: 20180920

REACTIONS (9)
  - Insomnia [Unknown]
  - Discomfort [Unknown]
  - Peripheral venous disease [Unknown]
  - Glucose tolerance impaired [Unknown]
  - Neuropathy peripheral [Unknown]
  - Movement disorder [Unknown]
  - Poor peripheral circulation [Unknown]
  - Peripheral coldness [Unknown]
  - Pain in extremity [Unknown]
